FAERS Safety Report 4609010-2 (Version None)
Quarter: 2005Q1

REPORT INFORMATION
  Report Type: 
  Country: None (occurrence: None)
  Receive Date: 20050311
  Receipt Date: 20050301
  Transmission Date: 20050727
  Serious: Yes (Other)
  Sender: FDA-Public Use
  Company Number: 2005033148

PATIENT
  Age: 77 Year
  Sex: Male
  Weight: 92.9874 kg

DRUGS (9)
  1. DETROL LA [Suspect]
     Indication: ILL-DEFINED DISORDER
     Dates: start: 20000101
  2. CARDURA [Suspect]
     Indication: ILL-DEFINED DISORDER
  3. BEXTRA [Suspect]
     Indication: ARTHRITIS
  4. CELEBREX [Suspect]
     Indication: ARTHRITIS
  5. CITALOPRAM HYDROBROMIDE [Concomitant]
  6. METOPROLOL [Concomitant]
  7. OLMESARTAN MEDOXOMIL [Concomitant]
  8. ACETYLSALICYLIC ACID SRT [Concomitant]
  9. PROPANTHELINE BROMIDE [Concomitant]

REACTIONS (8)
  - ARTHRITIS [None]
  - DRUG EFFECT DECREASED [None]
  - DRY MOUTH [None]
  - GALLBLADDER OPERATION [None]
  - MICTURITION URGENCY [None]
  - NOCTURIA [None]
  - POLLAKIURIA [None]
  - POSTOPERATIVE CONSTIPATION [None]
